FAERS Safety Report 23850463 (Version 1)
Quarter: 2024Q2

REPORT INFORMATION
  Report Type: Spontaneous
  Country: GR (occurrence: None)
  Receive Date: 20240513
  Receipt Date: 20240513
  Transmission Date: 20240716
  Serious: Yes (Other)
  Sender: FDA-Public Use
  Company Number: GR-ROCHE-3556806

PATIENT
  Age: 68 Year
  Sex: Female

DRUGS (1)
  1. OCREVUS [Suspect]
     Active Substance: OCRELIZUMAB
     Indication: Primary progressive multiple sclerosis
     Route: 065

REACTIONS (5)
  - B-lymphocyte count decreased [Unknown]
  - Leukopenia [Unknown]
  - Neutropenia [Unknown]
  - CD4/CD8 ratio increased [Unknown]
  - T-lymphocyte count decreased [Unknown]
